FAERS Safety Report 15348161 (Version 1)
Quarter: 2018Q3

REPORT INFORMATION
  Report Type: Spontaneous
  Country: US (occurrence: US)
  Receive Date: 20180904
  Receipt Date: 20180904
  Transmission Date: 20181010
  Serious: No
  Sender: FDA-Public Use
  Company Number: US-B.I. PHARMACEUTICALS,INC./RIDGEFIELD-2018-BI-042836

PATIENT
  Age: 77 Year
  Sex: Female

DRUGS (5)
  1. SPIRIVA [Suspect]
     Active Substance: TIOTROPIUM BROMIDE MONOHYDRATE
     Indication: CHRONIC OBSTRUCTIVE PULMONARY DISEASE
  2. ROSUVASTATIN. [Concomitant]
     Active Substance: ROSUVASTATIN
     Indication: BLOOD CHOLESTEROL INCREASED
     Dosage: ONE CAPLET DAILY;  FORM STRENGTH: 5MG; FORMULATION: CAPLET
     Route: 048
  3. SPIRIVA [Suspect]
     Active Substance: TIOTROPIUM BROMIDE MONOHYDRATE
     Indication: BRONCHITIS CHRONIC
     Dosage: CORRECT? YES ACTION(S) TAKEN WITH PRODUCT: DOSE NOT CHANGED
     Route: 055
     Dates: start: 2012
  4. SUCRALFATE. [Concomitant]
     Active Substance: SUCRALFATE
     Indication: DUODENAL ULCER
     Dosage: FORM STRENGTH: 1 GM; FORMULATION: CAPLET
     Route: 048
  5. LISINOPRIL. [Concomitant]
     Active Substance: LISINOPRIL
     Indication: HYPERTENSION
     Dosage: ONE CAPLET DAILY;  FORM STRENGTH: 5MG; FORMULATION: CAPLET
     Route: 048

REACTIONS (7)
  - Sinusitis [Unknown]
  - Feeling abnormal [Unknown]
  - Laryngitis [Recovered/Resolved]
  - Dysphonia [Unknown]
  - Oral candidiasis [Recovered/Resolved]
  - Oropharyngeal pain [Unknown]
  - Ear discomfort [Unknown]

NARRATIVE: CASE EVENT DATE: 20180810
